FAERS Safety Report 6479986-X (Version None)
Quarter: 2009Q4

REPORT INFORMATION
  Report Type: 
  Country: None (occurrence: None)
  Receive Date: 20091202
  Receipt Date: 20091117
  Transmission Date: 20100525
  Serious: Yes (Hospitalization)
  Sender: FDA-Public Use
  Company Number: 413902

PATIENT
  Age: 11 Year
  Sex: Male
  Weight: 8 kg

DRUGS (8)
  1. VINCRISTINE [Suspect]
     Indication: LYMPHOCYTIC LEUKAEMIA
     Dosage: 400 MCG ( 1 WEEK ), INTRAVENOUS
     Route: 042
     Dates: start: 20080731, end: 20080821
  2. (LANVIS) [Suspect]
     Indication: LYMPHOCYTIC LEUKAEMIA
     Dosage: 20 MG, ORAL
     Route: 048
     Dates: start: 20080731, end: 20080828
  3. (CERUBIDINE) [Suspect]
     Indication: LYMPHOCYTIC LEUKAEMIA
     Dosage: 8500 MCG ( 1 WEEK )
     Dates: start: 20080731, end: 20080821
  4. (ENDOXAN  /00021101/) [Suspect]
     Indication: LYMPHOCYTIC LEUKAEMIA
     Dosage: 140 MG, INTRAVENOUS
     Route: 042
     Dates: start: 20080904, end: 20080914
  5. CYTARABINE [Suspect]
     Indication: LYMPHOCYTIC LEUKAEMIA
     Dosage: 21 MG ( 4 WEEK), INTRAVENOUS; 15 MG (1 YEAR), INTRATHECAL
     Route: 042
     Dates: start: 20080801, end: 20080825
  6. (KIDROLASE) [Suspect]
     Indication: LYMPHOCYTIC LEUKAEMIA
     Dosage: 678 IU, INTRAVENOUS
     Route: 042
     Dates: start: 20080731, end: 20080731
  7. METHYLPREDNISOLONE [Concomitant]
  8. (DEXAMETIASONE) [Concomitant]

REACTIONS (4)
  - APLASIA [None]
  - BLOOD CULTURE POSITIVE [None]
  - ENTEROCOCCAL INFECTION [None]
  - STAPHYLOCOCCAL INFECTION [None]
